FAERS Safety Report 7239149-7 (Version None)
Quarter: 2011Q1

REPORT INFORMATION
  Report Type: 
  Country: None (occurrence: None)
  Receive Date: 20110114
  Receipt Date: 20101231
  Transmission Date: 20110831
  Serious: Yes (Death)
  Sender: FDA-Public Use
  Company Number: CL-283-2011

PATIENT
  Age: 42 Year
  Sex: Female

DRUGS (5)
  1. OMEPRAZOLE [Suspect]
     Dosage: ORAL
     Route: 048
  2. HYDROMORPHONE (HYDROMORPHONE) [Suspect]
     Dosage: ORAL
     Route: 048
  3. AMITRIPTYLINE (AMITRIPTYLINE) [Suspect]
     Dosage: ORAL
  4. VERAPAMIL HCL [Suspect]
     Dosage: ORAL
     Route: 048
  5. ONDANSETRON HCL [Suspect]
     Dosage: ORAL
     Route: 048

REACTIONS (1)
  - TOXICITY TO VARIOUS AGENTS [None]
